FAERS Safety Report 7518694-0 (Version None)
Quarter: 2011Q2

REPORT INFORMATION
  Report Type: 
  Country: None (occurrence: None)
  Receive Date: 20110602
  Receipt Date: 20110520
  Transmission Date: 20111010
  Serious: Yes (Other)
  Sender: FDA-Public Use
  Company Number: PHHY2011GB43820

PATIENT
  Age: 51 Year
  Sex: Male

DRUGS (2)
  1. SUNITINIB MALATE [Concomitant]
     Indication: METASTATIC RENAL CELL CARCINOMA
     Dosage: 50 MG, QD FOR 28 DAYS IN 6 WEEK CYCLE
     Dates: start: 20050101
  2. ZOLEDRONIC ACID [Suspect]
     Indication: METASTASES TO BONE
     Dosage: UNK

REACTIONS (7)
  - BONE FRAGMENTATION [None]
  - GINGIVAL RECESSION [None]
  - TOOTH DISORDER [None]
  - EXPOSED BONE IN JAW [None]
  - PAIN IN JAW [None]
  - OSTEONECROSIS OF JAW [None]
  - ORAL DISCOMFORT [None]
